FAERS Safety Report 24729158 (Version 1)
Quarter: 2024Q4

REPORT INFORMATION
  Report Type: Spontaneous
  Country: JP (occurrence: JP)
  Receive Date: 20241213
  Receipt Date: 20241213
  Transmission Date: 20250114
  Serious: Yes (Death, Other)
  Sender: GLAXOSMITHKLINE
  Company Number: JP-GSK-JP2024JPN097657

PATIENT

DRUGS (1)
  1. DAPRODUSTAT [Suspect]
     Active Substance: DAPRODUSTAT
     Indication: Nephrogenic anaemia
     Dosage: 2 MG
     Route: 048
     Dates: start: 202406

REACTIONS (4)
  - Infection [Fatal]
  - Renal failure [Unknown]
  - Haemoglobin increased [Unknown]
  - Product use issue [Unknown]
